FAERS Safety Report 12115573 (Version 1)
Quarter: 2016Q1

REPORT INFORMATION
  Report Type: Spontaneous
  Country: US (occurrence: US)
  Receive Date: 20160225
  Receipt Date: 20160225
  Transmission Date: 20160526
  Serious: Yes (Other)
  Sender: FDA-Public Use
  Company Number: US-LPDUSPRD-20160142

PATIENT
  Age: 31 Year
  Sex: Female

DRUGS (8)
  1. ISOFLURANE 3% [Concomitant]
     Dosage: 3%
     Route: 065
  2. OXYTOCIN. [Concomitant]
     Active Substance: OXYTOCIN
     Dosage: 20 UNITS/H
     Route: 065
  3. METHYLERGONOVINE MALEATE INJECTION, USP (0740-20) [Suspect]
     Active Substance: METHYLERGONOVINE MALEATE
     Dosage: 0.2 UG, TIMES 2 DOSES IN 5 MIN
     Route: 030
  4. ETOMIDATE. [Concomitant]
     Active Substance: ETOMIDATE
     Dosage: 20 MG
     Route: 065
  5. REMIFENTANIL [Concomitant]
     Active Substance: REMIFENTANIL
     Dosage: 0.1 UG/KG/MIN
     Route: 065
  6. SUCCINYLCHOLINE [Concomitant]
     Active Substance: SUCCINYLCHOLINE
     Dosage: 120 MG
     Route: 065
  7. DOBUTAMINE [Concomitant]
     Active Substance: DOBUTAMINE\DOBUTAMINE HYDROCHLORIDE
     Dosage: DOSE NOT PROVIDED
     Route: 042
  8. FENTANYL. [Concomitant]
     Active Substance: FENTANYL
     Dosage: BOLUS-TOTAL DOSE 500 UG
     Route: 065

REACTIONS (1)
  - Pulmonary hypertension [Unknown]
